FAERS Safety Report 4290325-5 (Version None)
Quarter: 2004Q1

REPORT INFORMATION
  Report Type: 
  Country: None (occurrence: None)
  Receive Date: 20040209
  Receipt Date: 20040126
  Transmission Date: 20041129
  Serious: Yes (Other)
  Sender: FDA-Public Use
  Company Number: HQWYE576127JAN04

PATIENT
  Age: 37 Year
  Sex: Female
  Weight: 64.47 kg

DRUGS (3)
  1. PHENERGAN [Suspect]
     Indication: DIARRHOEA
     Dosage: DOSE TWICE DAILY, RECTAL
     Route: 054
     Dates: start: 20040124, end: 20040124
  2. PHENERGAN [Suspect]
     Indication: NAUSEA
     Dosage: DOSE TWICE DAILY, RECTAL
     Route: 054
     Dates: start: 20040124, end: 20040124
  3. PHENERGAN [Suspect]
     Indication: VOMITING
     Dosage: DOSE TWICE DAILY, RECTAL
     Route: 054
     Dates: start: 20040124, end: 20040124

REACTIONS (1)
  - HYPERSENSITIVITY [None]
